FAERS Safety Report 6046423-9 (Version None)
Quarter: 2009Q1

REPORT INFORMATION
  Report Type: 
  Country: None (occurrence: None)
  Receive Date: 20090121
  Receipt Date: 20090121
  Transmission Date: 20090719
  Serious: Yes (Life-Threatening, Other)
  Sender: FDA-Public Use
  Company Number: None

PATIENT
  Age: 45 Year
  Sex: Female
  Weight: 78.0187 kg

DRUGS (4)
  1. SEROQUEL [Suspect]
     Indication: MOOD ALTERED
     Dosage: 200MG 2XDAILY PO
     Route: 048
     Dates: start: 20030312, end: 20081117
  2. SEROQUEL [Suspect]
     Indication: POST-TRAUMATIC STRESS DISORDER
     Dosage: 200MG 2XDAILY PO
     Route: 048
     Dates: start: 20030312, end: 20081117
  3. PREDNISONE [Concomitant]
  4. ZOLOFT [Concomitant]

REACTIONS (3)
  - DRUG HYPERSENSITIVITY [None]
  - MENTAL DISORDER [None]
  - SOMNOLENCE [None]
